FAERS Safety Report 14310253 (Version 3)
Quarter: 2018Q1

REPORT INFORMATION
  Report Type: Report from Study
  Country: US (occurrence: US)
  Receive Date: 20171220
  Receipt Date: 20180212
  Transmission Date: 20180509
  Serious: Yes (Hospitalization, Other)
  Sender: FDA-Public Use
  Company Number: US-GILEAD-2017-0311752

PATIENT
  Age: 86 Year
  Sex: Female
  Weight: 77.91 kg

DRUGS (14)
  1. STOOL SOFTENER (DOCUSATE) [Concomitant]
     Active Substance: DOCUSATE
  2. LOVASTATIN. [Concomitant]
     Active Substance: LOVASTATIN
  3. PROCTOSOL HC [Concomitant]
  4. AZITHROMYCIN ANHYDROUS. [Concomitant]
     Active Substance: AZITHROMYCIN ANHYDROUS
  5. FLUCONAZOLE. [Concomitant]
     Active Substance: FLUCONAZOLE
  6. AMOXICILLIN. [Concomitant]
     Active Substance: AMOXICILLIN
  7. LORATADINE. [Concomitant]
     Active Substance: LORATADINE
  8. SPIRONOLACTONE. [Concomitant]
     Active Substance: SPIRONOLACTONE
  9. AMBRISENTAN [Suspect]
     Active Substance: AMBRISENTAN
     Indication: PULMONARY HYPERTENSION
     Dosage: 5 MG, QD
     Route: 065
  10. ALPRAZOLAM. [Concomitant]
     Active Substance: ALPRAZOLAM
  11. TORSEMIDE. [Concomitant]
     Active Substance: TORSEMIDE
  12. MAXIMUM D3 [Concomitant]
     Active Substance: CHOLECALCIFEROL
  13. ASPIRIN                            /00002701/ [Concomitant]
     Active Substance: ASPIRIN
  14. ADCIRCA [Concomitant]
     Active Substance: TADALAFIL

REACTIONS (6)
  - Fall [Unknown]
  - Gastric operation [Recovered/Resolved]
  - Fractured coccyx [Unknown]
  - Intentional dose omission [Recovered/Resolved]
  - Balance disorder [Unknown]
  - Hip fracture [Unknown]

NARRATIVE: CASE EVENT DATE: 20171122
